FAERS Safety Report 5590825-1 (Version None)
Quarter: 2008Q1

REPORT INFORMATION
  Report Type: 
  Country: None (occurrence: None)
  Receive Date: 20080110
  Receipt Date: 20080102
  Transmission Date: 20080703
  Serious: Yes (Death, Other)
  Sender: FDA-Public Use
  Company Number: 2007-03563

PATIENT
  Sex: Female

DRUGS (1)
  1. VELCADE [Suspect]
     Indication: MULTIPLE MYELOMA
     Dosage: 1.40 MG/M2
     Dates: start: 20060501, end: 20060901

REACTIONS (5)
  - COMPUTERISED TOMOGRAM ABNORMAL [None]
  - DIPLOPIA [None]
  - DISEASE PROGRESSION [None]
  - HYPOAESTHESIA [None]
  - NEUROLOGICAL SYMPTOM [None]
